FAERS Safety Report 10948103 (Version 1)
Quarter: 2015Q1

REPORT INFORMATION
  Report Type: Spontaneous
  Country: US (occurrence: None)
  Receive Date: 20150323
  Receipt Date: 20150323
  Transmission Date: 20150721
  Serious: No
  Sender: FDA-Public Use
  Company Number: None

PATIENT
  Age: 36 Year
  Sex: Female

DRUGS (1)
  1. STELARA [Suspect]
     Active Substance: USTEKINUMAB
     Indication: PSORIASIS
     Dosage: 45MG Q3MONT SQ
     Route: 058
     Dates: start: 2012

REACTIONS (4)
  - Pregnancy [None]
  - Maternal exposure during pregnancy [None]
  - Infertility [None]
  - Premature menopause [None]
